FAERS Safety Report 6831084-9 (Version None)
Quarter: 2010Q3

REPORT INFORMATION
  Report Type: 
  Country: None (occurrence: None)
  Receive Date: 20100712
  Receipt Date: 20100706
  Transmission Date: 20110219
  Serious: Yes (Other)
  Sender: FDA-Public Use
  Company Number: US-SANOFI-AVENTIS-2010SA039613

PATIENT
  Sex: Female

DRUGS (6)
  1. PLAVIX [Suspect]
     Indication: CAROTID ARTERY STENT INSERTION
     Route: 065
     Dates: start: 20100517
  2. ALL OTHER THERAPEUTIC PRODUCTS [Concomitant]
  3. PAXIL [Concomitant]
  4. ALL OTHER THERAPEUTIC PRODUCTS [Concomitant]
  5. HYDROCODONE BITARTRATE [Concomitant]
  6. ALL OTHER THERAPEUTIC PRODUCTS [Concomitant]

REACTIONS (2)
  - CONVULSION [None]
  - OFF LABEL USE [None]
